FAERS Safety Report 9310381 (Version 4)
Quarter: 2013Q3

REPORT INFORMATION
  Report Type: Spontaneous
  Country: IT (occurrence: IT)
  Receive Date: 20130527
  Receipt Date: 20130722
  Transmission Date: 20140515
  Serious: Yes (Hospitalization)
  Sender: FDA-Public Use
  Company Number: IT-BRISTOL-MYERS SQUIBB COMPANY-18928739

PATIENT
  Age: 42 Year
  Sex: Female

DRUGS (1)
  1. YERVOY [Suspect]
     Indication: MALIGNANT MELANOMA
     Dosage: 21MAY2013.?YERVOY 5MG/ML INF SOLN
     Route: 042
     Dates: start: 20130430, end: 20130521

REACTIONS (2)
  - Malignant neoplasm progression [Recovering/Resolving]
  - Pneumonia [Recovering/Resolving]
